FAERS Safety Report 8146936-X (Version None)
Quarter: 2012Q1

REPORT INFORMATION
  Report Type: 
  Country: None (occurrence: None)
  Receive Date: 20120217
  Receipt Date: 20120208
  Transmission Date: 20120608
  Serious: Yes (Other)
  Sender: FDA-Public Use
  Company Number: JP-ASTRAZENECA-2012SE05756

PATIENT
  Age: 46 Year
  Sex: Male

DRUGS (3)
  1. DIPRIVAN [Suspect]
     Indication: SEDATION
     Route: 042
     Dates: start: 20120101, end: 20120101
  2. ACTIVASE [Concomitant]
     Dosage: DOSE UNKNOWN
     Route: 065
  3. FLUMARIN [Suspect]
     Dosage: DOSE UNKNOWN
     Route: 065

REACTIONS (1)
  - SHOCK [None]
